FAERS Safety Report 5900157-7 (Version None)
Quarter: 2008Q3

REPORT INFORMATION
  Report Type: 
  Country: None (occurrence: None)
  Receive Date: 20080926
  Receipt Date: 20080917
  Transmission Date: 20090109
  Serious: Yes (Other)
  Sender: FDA-Public Use
  Company Number: FI-SANOFI-SYNTHELABO-A01200811452

PATIENT
  Sex: Female

DRUGS (6)
  1. PREDNISOLONE [Concomitant]
     Indication: JUVENILE ARTHRITIS
     Dosage: 5 MG
     Route: 048
  2. ENBREL [Suspect]
     Indication: JUVENILE ARTHRITIS
     Route: 058
     Dates: start: 20060608, end: 20060815
  3. ENBREL [Suspect]
     Dosage: UNK
     Route: 065
     Dates: start: 20070912
  4. PLAQUENIL [Suspect]
     Indication: JUVENILE ARTHRITIS
     Route: 048
     Dates: end: 20060801
  5. SANDIMMUNE [Suspect]
     Indication: JUVENILE ARTHRITIS
     Dosage: 150 MG
     Route: 048
     Dates: start: 19980101, end: 20060801
  6. TREXAN [Suspect]
     Indication: JUVENILE ARTHRITIS
     Route: 030
     Dates: start: 20070901

REACTIONS (1)
  - MALIGNANT MELANOMA [None]
